FAERS Safety Report 17402083 (Version 3)
Quarter: 2020Q1

REPORT INFORMATION
  Report Type: Spontaneous
  Country: GB (occurrence: GB)
  Receive Date: 20200211
  Receipt Date: 20200317
  Transmission Date: 20200409
  Serious: Yes (Hospitalization, Other)
  Sender: FDA-Public Use
  Company Number: NVSC2020GB028296

PATIENT
  Age: 8 Year
  Sex: Female
  Weight: 23.35 kg

DRUGS (5)
  1. DEXAMETHASONE. [Suspect]
     Active Substance: DEXAMETHASONE
     Indication: PRODUCT USED FOR UNKNOWN INDICATION
     Dosage: UNK
     Route: 065
  2. RANITIDINE. [Concomitant]
     Active Substance: RANITIDINE
     Indication: PRODUCT USED FOR UNKNOWN INDICATION
     Dosage: UNK
     Route: 065
  3. EVEROLIMUS. [Suspect]
     Active Substance: EVEROLIMUS
     Indication: BRAIN STEM GLIOMA
     Dosage: 5 MG ON MONDAY,WEDNESDAY AND FRIDAY AND 2.5 MG ON TUESDAY,THURSDAY,SATURDAY AND SUNDAY
     Route: 048
     Dates: start: 20190717, end: 20191014
  4. EVEROLIMUS. [Suspect]
     Active Substance: EVEROLIMUS
     Dosage: 25 MG, QW
     Route: 048
     Dates: end: 20191014
  5. VANDETANIB. [Suspect]
     Active Substance: VANDETANIB
     Indication: BRAIN STEM GLIOMA
     Dosage: 100 MG, QOD (65 MG/M2)
     Route: 048
     Dates: start: 20191009, end: 20191014

REACTIONS (18)
  - White blood cell count decreased [Not Recovered/Not Resolved]
  - Stomatitis [Recovered/Resolved]
  - Hemiparesis [Recovered/Resolved]
  - Electrocardiogram QT prolonged [Recovered/Resolved]
  - Blood cholesterol increased [Recovered/Resolved]
  - Neutrophil count decreased [Recovered/Resolved]
  - Myoclonus [Unknown]
  - Alanine aminotransferase increased [Unknown]
  - Ataxia [Recovered/Resolved]
  - Facial paralysis [Recovered/Resolved]
  - Hypophosphataemia [Recovered/Resolved]
  - Facial paralysis [Unknown]
  - Flatulence [Recovered/Resolved]
  - Ocular hyperaemia [Recovered/Resolved]
  - Facial paralysis [Recovered/Resolved]
  - Blood cholesterol increased [Not Recovered/Not Resolved]
  - Abdominal distension [Recovered/Resolved]
  - Reflux gastritis [Unknown]

NARRATIVE: CASE EVENT DATE: 20191009
